FAERS Safety Report 22227343 (Version 1)
Quarter: 2023Q2

REPORT INFORMATION
  Report Type: Spontaneous
  Country: JP (occurrence: JP)
  Receive Date: 20230419
  Receipt Date: 20230419
  Transmission Date: 20230722
  Serious: Yes (Other)
  Sender: FDA-Public Use
  Company Number: JP-UCBJ-CD202304257UCBPHAPROD

PATIENT
  Sex: Male

DRUGS (3)
  1. LEVETIRACETAM [Suspect]
     Active Substance: LEVETIRACETAM
     Indication: Epilepsy
     Dosage: 500 MILLIGRAM EVERY 12 HOURS
     Route: 048
  2. LEVETIRACETAM [Suspect]
     Active Substance: LEVETIRACETAM
     Dosage: 750 MILLIGRAM EVERY 12 HOURS
     Route: 048
  3. VIMPAT [Suspect]
     Active Substance: LACOSAMIDE
     Indication: Epilepsy
     Dosage: 100 MILLIGRAM, ONCE DAILY (QD)
     Route: 048

REACTIONS (13)
  - Epilepsy [Unknown]
  - Suicidal ideation [Unknown]
  - Gait disturbance [Unknown]
  - Dizziness [Unknown]
  - Fall [Unknown]
  - Hypoaesthesia [Unknown]
  - Gingival bleeding [Unknown]
  - Tooth loss [Unknown]
  - Palpitations [Unknown]
  - Hyperhidrosis [Unknown]
  - Speech disorder [Unknown]
  - Salivary hypersecretion [Unknown]
  - Weight decreased [Unknown]
